FAERS Safety Report 5335785-3 (Version None)
Quarter: 2007Q2

REPORT INFORMATION
  Report Type: 
  Country: None (occurrence: None)
  Receive Date: 20070322
  Receipt Date: 20070212
  Transmission Date: 20071010
  Serious: No
  Sender: FDA-Public Use
  Company Number: 2007US000325

PATIENT
  Age: 91 Year
  Sex: Female

DRUGS (9)
  1. VESICARE [Suspect]
     Indication: DRUG USE FOR UNKNOWN INDICATION
     Dosage: 5 MG, ORAL
     Route: 048
     Dates: start: 20061203
  2. PROVITAL (LYSINE, PANAX GINGSENG EXTRACT, MINERAL NOS, VITAMIN NOS, LI [Concomitant]
  3. PROTONIX [Concomitant]
  4. ESTRACE [Concomitant]
  5. FLORINEF [Concomitant]
  6. POTASSIUM (POTASSIUM) [Concomitant]
  7. XALATAN [Concomitant]
  8. SYNTHROID [Concomitant]
  9. LANOXIN [Concomitant]

REACTIONS (1)
  - CHROMATURIA [None]
